FAERS Safety Report 7924490-2 (Version None)
Quarter: 2011Q4

REPORT INFORMATION
  Report Type: 
  Country: None (occurrence: None)
  Receive Date: 20111117
  Receipt Date: 20110322
  Transmission Date: 20120403
  Serious: No
  Sender: FDA-Public Use
  Company Number: US-AMGEN-USASP2011015485

PATIENT
  Age: 60 Year
  Sex: Female

DRUGS (2)
  1. ENBREL [Suspect]
     Indication: RHEUMATOID ARTHRITIS
     Dosage: 50 MG, QWK
     Dates: start: 20110216
  2. ENBREL [Suspect]
     Indication: AUTOIMMUNE HEPATITIS

REACTIONS (4)
  - DIARRHOEA [None]
  - SINUSITIS [None]
  - FREQUENT BOWEL MOVEMENTS [None]
  - NASOPHARYNGITIS [None]
